FAERS Safety Report 4764684-0 (Version None)
Quarter: 2005Q3

REPORT INFORMATION
  Report Type: 
  Country: None (occurrence: None)
  Receive Date: 20050909
  Receipt Date: 20050907
  Transmission Date: 20060218
  Serious: Yes (Disabling)
  Sender: FDA-Public Use
  Company Number: AU-MERCK-0509AUS00046

PATIENT
  Age: 51 Year
  Sex: Female
  Weight: 70 kg

DRUGS (1)
  1. ZOCOR [Suspect]
     Indication: METABOLIC DISORDER
     Route: 048

REACTIONS (2)
  - NEUROPATHIC PAIN [None]
  - NEUROPATHY PERIPHERAL [None]
